FAERS Safety Report 5163807-1 (Version None)
Quarter: 2006Q4

REPORT INFORMATION
  Report Type: 
  Country: None (occurrence: None)
  Receive Date: 20061129
  Receipt Date: 20061129
  Transmission Date: 20070319
  Serious: No
  Sender: FDA-Public Use
  Company Number: None

PATIENT
  Sex: Female
  Weight: 45.3597 kg

DRUGS (1)
  1. POLYETHYLENE GLYCOL 3350, NF BRAINTREE LABORATORIES [Suspect]
     Indication: CONSTIPATION
     Dosage: 17GR DISSOLVED IN 8 OZ LIQUID TWICE DAILY PO
     Route: 048
     Dates: start: 20050411, end: 20061127

REACTIONS (3)
  - OEDEMA PERIPHERAL [None]
  - RASH PRURITIC [None]
  - SKIN DISCOLOURATION [None]
